FAERS Safety Report 24546804 (Version 2)
Quarter: 2024Q4

REPORT INFORMATION
  Report Type: Spontaneous
  Country: US (occurrence: US)
  Receive Date: 20241024
  Receipt Date: 20241118
  Transmission Date: 20250114
  Serious: No
  Sender: BAUSCH AND LOMB
  Company Number: US-BAUSCHBL-2024BNL036034

PATIENT
  Sex: Female

DRUGS (1)
  1. LATANOPROST [Suspect]
     Active Substance: LATANOPROST
     Indication: Glaucoma
     Dosage: TAKEN DAILY
     Route: 047

REACTIONS (3)
  - Wrong technique in product usage process [Unknown]
  - Product closure removal difficult [Unknown]
  - Pain in extremity [Unknown]
